FAERS Safety Report 10631987 (Version 1)
Quarter: 2014Q4

REPORT INFORMATION
  Report Type: Spontaneous
  Country: DE (occurrence: ES)
  Receive Date: 20141205
  Receipt Date: 20141205
  Transmission Date: 20150529
  Serious: Yes (Other)
  Sender: FDA-Public Use
  Company Number: ES-MERZ NORTH AMERICA, INC.-14MRZ-00427

PATIENT
  Age: 28 Year
  Sex: Male

DRUGS (1)
  1. AETHOXYSKLEROL [Suspect]
     Active Substance: POLIDOCANOL
     Dosage: DOSE UNKNOWN
     Route: 042
     Dates: start: 2008

REACTIONS (3)
  - Cerebrovascular accident [None]
  - Headache [None]
  - Visual acuity reduced [None]

NARRATIVE: CASE EVENT DATE: 2008
